FAERS Safety Report 6373255-4 (Version None)
Quarter: 2009Q3

REPORT INFORMATION
  Report Type: 
  Country: None (occurrence: None)
  Receive Date: 20090924
  Receipt Date: 20090902
  Transmission Date: 20100115
  Serious: Yes (Congenital Anomaly, Other)
  Sender: FDA-Public Use
  Company Number: US-RANBAXY-2008US-19549

PATIENT

DRUGS (2)
  1. ISOTRETINOIN [Suspect]
     Indication: DRUG USE FOR UNKNOWN INDICATION
     Dosage: 40 MG, ALTERNATING QD + BID QOD
     Route: 048
     Dates: start: 20080929, end: 20081118
  2. VITAMIN TAB [Concomitant]
     Indication: DRUG USE FOR UNKNOWN INDICATION
     Dosage: UNK

REACTIONS (2)
  - CONGENITAL ANOMALY IN OFFSPRING [None]
  - PREGNANCY [None]
